FAERS Safety Report 18582020 (Version 1)
Quarter: 2020Q4

REPORT INFORMATION
  Report Type: Spontaneous
  Country: US (occurrence: US)
  Receive Date: 20201203
  Receipt Date: 20201203
  Transmission Date: 20210114
  Serious: Yes (Hospitalization)
  Sender: FDA-Public Use
  Company Number: None

PATIENT
  Age: 68 Year
  Sex: Female
  Weight: 69.5 kg

DRUGS (1)
  1. ARIMIDEX [Suspect]
     Active Substance: ANASTROZOLE
     Dates: end: 20201025

REACTIONS (6)
  - Urinary tract infection [None]
  - Tricuspid valve incompetence [None]
  - Atrioventricular block first degree [None]
  - Sinus bradycardia [None]
  - Mitral valve incompetence [None]
  - Presyncope [None]

NARRATIVE: CASE EVENT DATE: 20201026
